FAERS Safety Report 9732556 (Version 1)
Quarter: 2013Q4

REPORT INFORMATION
  Report Type: Spontaneous
  Country: US (occurrence: US)
  Receive Date: 20131205
  Receipt Date: 20131205
  Transmission Date: 20140711
  Serious: No
  Sender: FDA-Public Use
  Company Number: US-PFIZER INC-2013342113

PATIENT
  Age: 29 Year
  Sex: Female
  Weight: 54.42 kg

DRUGS (3)
  1. AZITHROMYCIN [Suspect]
     Indication: PHARYNGITIS BACTERIAL
     Dosage: (50MG (2 X 25 MG) ON THE FIRST DAY FOLLOWED BY 25MG DOSE FOR REST OF THE 5 DAYS), 1X/DAY
     Dates: start: 20131124, end: 20131126
  2. FLUOXETINE HYDROCHLORIDE [Concomitant]
     Indication: ANXIETY
     Dosage: 40 MG, 1X/DAY
  3. TRI-SPRINTEC [Concomitant]
     Indication: CONTRACEPTION
     Dosage: UNK

REACTIONS (3)
  - Hypersensitivity [Unknown]
  - Inflammation [Unknown]
  - Urticaria [Not Recovered/Not Resolved]
